FAERS Safety Report 19115015 (Version 1)
Quarter: 2021Q2

REPORT INFORMATION
  Report Type: Spontaneous
  Country: US (occurrence: US)
  Receive Date: 20210409
  Receipt Date: 20210409
  Transmission Date: 20210717
  Serious: Yes (Other)
  Sender: FDA-Public Use
  Company Number: US-GLAXOSMITHKLINE-US2021GSK078281

PATIENT
  Sex: Male

DRUGS (20)
  1. ZANTAC [Suspect]
     Active Substance: RANITIDINE HYDROCHLORIDE
     Indication: GASTROOESOPHAGEAL REFLUX DISEASE
     Dosage: 150 MG QD
     Route: 065
     Dates: start: 199001, end: 201901
  2. RANITIDINE. [Suspect]
     Active Substance: RANITIDINE
     Indication: GASTROOESOPHAGEAL REFLUX DISEASE
     Dosage: 150 MG QD
     Route: 065
     Dates: start: 199001, end: 201901
  3. RANITIDINE. [Suspect]
     Active Substance: RANITIDINE
     Indication: OESOPHAGEAL OPERATION
  4. RANITIDINE. [Suspect]
     Active Substance: RANITIDINE
     Indication: OESOPHAGEAL DYSPLASIA
  5. ZANTAC [Suspect]
     Active Substance: RANITIDINE HYDROCHLORIDE
     Indication: GASTROOESOPHAGEAL REFLUX DISEASE
     Dosage: AFTER TMJ SURGERY
     Route: 042
     Dates: start: 199001, end: 199001
  6. ZANTAC [Suspect]
     Active Substance: RANITIDINE HYDROCHLORIDE
     Indication: OESOPHAGEAL OPERATION
  7. ZANTAC [Suspect]
     Active Substance: RANITIDINE HYDROCHLORIDE
     Indication: BARRETT^S OESOPHAGUS
     Dosage: 300 MG, QD
     Route: 065
     Dates: start: 199001, end: 201901
  8. ZANTAC [Suspect]
     Active Substance: RANITIDINE HYDROCHLORIDE
     Indication: OESOPHAGEAL DYSPLASIA
  9. ZANTAC [Suspect]
     Active Substance: RANITIDINE HYDROCHLORIDE
     Indication: OESOPHAGEAL DYSPLASIA
  10. ZANTAC [Suspect]
     Active Substance: RANITIDINE HYDROCHLORIDE
     Indication: OESOPHAGEAL DYSPLASIA
  11. RANITIDINE. [Suspect]
     Active Substance: RANITIDINE
     Indication: GASTROOESOPHAGEAL REFLUX DISEASE
     Dosage: 150 MG QD
     Route: 065
     Dates: start: 199001, end: 201901
  12. ZANTAC [Suspect]
     Active Substance: RANITIDINE HYDROCHLORIDE
     Indication: GASTROOESOPHAGEAL REFLUX DISEASE
     Dosage: 150 MG QD
     Route: 065
     Dates: start: 199001, end: 201901
  13. ZANTAC [Suspect]
     Active Substance: RANITIDINE HYDROCHLORIDE
     Indication: OESOPHAGEAL OPERATION
  14. RANITIDINE. [Suspect]
     Active Substance: RANITIDINE
     Indication: OESOPHAGEAL DYSPLASIA
  15. RANITIDINE. [Suspect]
     Active Substance: RANITIDINE
     Indication: OESOPHAGEAL OPERATION
  16. ZANTAC [Suspect]
     Active Substance: RANITIDINE HYDROCHLORIDE
     Indication: BARRETT^S OESOPHAGUS
     Dosage: UNK
  17. ZANTAC [Suspect]
     Active Substance: RANITIDINE HYDROCHLORIDE
     Indication: OESOPHAGEAL OPERATION
  18. ZANTAC [Suspect]
     Active Substance: RANITIDINE HYDROCHLORIDE
     Indication: BARRETT^S OESOPHAGUS
     Dosage: 300 MG, QD
     Route: 065
     Dates: start: 199001, end: 201901
  19. RANITIDINE. [Suspect]
     Active Substance: RANITIDINE
     Indication: BARRETT^S OESOPHAGUS
     Dosage: 300 MG, QD
     Route: 065
     Dates: start: 199001, end: 201901
  20. RANITIDINE. [Suspect]
     Active Substance: RANITIDINE
     Indication: BARRETT^S OESOPHAGUS
     Dosage: 300 MG, QD
     Route: 065
     Dates: start: 199001, end: 201901

REACTIONS (2)
  - Barrett^s oesophagus [Unknown]
  - Oesophageal carcinoma [Unknown]
